FAERS Safety Report 8128761-9 (Version None)
Quarter: 2012Q1

REPORT INFORMATION
  Report Type: 
  Country: None (occurrence: None)
  Receive Date: 20120210
  Receipt Date: 20120126
  Transmission Date: 20120608
  Serious: Yes (Other)
  Sender: FDA-Public Use
  Company Number: TR-WATSON-2012-01447

PATIENT
  Age: 5 Year
  Sex: Male
  Weight: 56 kg

DRUGS (1)
  1. VALPROATE SODIUM [Suspect]
     Indication: PRODUCT USED FOR UNKNOWN INDICATION
     Dosage: UNK MG, DAILY
     Route: 065

REACTIONS (2)
  - HEPATOTOXICITY [None]
  - HEPATITIS A [None]
